FAERS Safety Report 9012793 (Version 1)
Quarter: 2013Q1

REPORT INFORMATION
  Report Type: Spontaneous
  Country: US (occurrence: US)
  Receive Date: 20130114
  Receipt Date: 20130114
  Transmission Date: 20140127
  Serious: Yes (Other)
  Sender: FDA-Public Use
  Company Number: US-MERCK-1301USA002099

PATIENT
  Age: 3 Year
  Sex: Male

DRUGS (8)
  1. MONTELUKAST SODIUM [Suspect]
  2. PREDNISOLONE [Suspect]
  3. RANITIDINE [Suspect]
  4. ALBUTEROL SULFATE [Suspect]
     Indication: CANDIDA INFECTION
  5. FLUCONAZOLE [Suspect]
  6. FUROSEMIDE [Suspect]
  7. DIGOXIN [Suspect]
  8. LEVALBUTEROL HYDROCHLORIDE [Suspect]
     Indication: ASTHMA

REACTIONS (2)
  - Polyp [Unknown]
  - Oral candidiasis [Unknown]
